FAERS Safety Report 11237716 (Version 1)
Quarter: 2015Q3

REPORT INFORMATION
  Report Type: Spontaneous
  Country: FR (occurrence: FR)
  Receive Date: 20150703
  Receipt Date: 20150703
  Transmission Date: 20151125
  Serious: Yes (Other)
  Sender: FDA-Public Use
  Company Number: FR-009507513-1506FRA013236

PATIENT
  Age: 21 Year
  Sex: Female

DRUGS (1)
  1. CELESTENE 4MG/1ML [Suspect]
     Active Substance: BETAMETHASONE
     Indication: MATERNAL THERAPY TO ENHANCE FOETAL LUNG MATURITY
     Dosage: 2 DOSES
     Route: 030
     Dates: start: 201403, end: 201403

REACTIONS (1)
  - Adrenal haematoma [Recovered/Resolved]

NARRATIVE: CASE EVENT DATE: 201403
